FAERS Safety Report 20825670 (Version 1)
Quarter: 2022Q2

REPORT INFORMATION
  Report Type: Spontaneous
  Country: IT (occurrence: IT)
  Receive Date: 20220513
  Receipt Date: 20220513
  Transmission Date: 20220721
  Serious: Yes (Hospitalization)
  Sender: FDA-Public Use
  Company Number: None

PATIENT
  Age: 44 Year
  Sex: Male

DRUGS (2)
  1. IBUPROFEN [Suspect]
     Active Substance: IBUPROFEN
     Indication: Abdominal pain
     Dosage: 600 MILLIGRAM, QD
     Route: 048
     Dates: start: 20220409, end: 20220410
  2. LOPERAMIDE HYDROCHLORIDE [Concomitant]
     Active Substance: LOPERAMIDE HYDROCHLORIDE
     Indication: Diarrhoea
     Dosage: 1 DOSAGE FORM, PRN (AS NECESSARY)
     Dates: start: 20220408, end: 20220410

REACTIONS (2)
  - Hypovolaemic shock [Recovering/Resolving]
  - Gastric ulcer [Recovering/Resolving]

NARRATIVE: CASE EVENT DATE: 20220411
